FAERS Safety Report 21375919 (Version 1)
Quarter: 2022Q3

REPORT INFORMATION
  Report Type: Spontaneous
  Country: US (occurrence: None)
  Receive Date: 20220923
  Receipt Date: 20220923
  Transmission Date: 20221027
  Serious: No
  Sender: FDA-Public Use
  Company Number: None

PATIENT
  Age: 24 Year
  Sex: Female
  Weight: 58.1 kg

DRUGS (1)
  1. REMICADE [Suspect]
     Active Substance: INFLIXIMAB
     Indication: Seronegative arthritis
     Dosage: OTHER FREQUENCY : EVERY 56 DAYS;?
     Route: 041
     Dates: start: 20220907

REACTIONS (6)
  - Hypersensitivity [None]
  - Rash pruritic [None]
  - Rash [None]
  - Lip swelling [None]
  - Infusion related reaction [None]
  - Swelling face [None]

NARRATIVE: CASE EVENT DATE: 20220922
